FAERS Safety Report 5036622-7 (Version None)
Quarter: 2006Q2

REPORT INFORMATION
  Report Type: 
  Country: None (occurrence: None)
  Receive Date: 20060623
  Receipt Date: 20060609
  Transmission Date: 20061013
  Serious: Yes (Life-Threatening)
  Sender: FDA-Public Use
  Company Number: 2006075369

PATIENT
  Sex: Male

DRUGS (2)
  1. IRINOTECAN HCL [Suspect]
     Indication: NEOPLASM MALIGNANT
     Dosage: INTRAVENOUS
     Route: 042
  2. TEGAFUR/GIMERACIL/OTERACIL POTASSIUM             (TEGAFUR/GIMERACIL/OT [Concomitant]

REACTIONS (1)
  - INTERSTITIAL LUNG DISEASE [None]
